FAERS Safety Report 9298720 (Version 1)
Quarter: 2013Q2

REPORT INFORMATION
  Report Type: Spontaneous
  Country: US (occurrence: US)
  Receive Date: 20130520
  Receipt Date: 20130520
  Transmission Date: 20140414
  Serious: Yes (Hospitalization)
  Sender: FDA-Public Use
  Company Number: US-GLAXOSMITHKLINE-A0790497A

PATIENT
  Age: 66 Year
  Sex: Female

DRUGS (1)
  1. AVANDIA [Suspect]
     Indication: DIABETES MELLITUS
     Dosage: 8MG PER DAY
     Route: 048
     Dates: start: 200004, end: 200412

REACTIONS (5)
  - Cardiac failure congestive [Not Recovered/Not Resolved]
  - Acute pulmonary oedema [Unknown]
  - Ventricular tachycardia [Unknown]
  - Heart valve replacement [Unknown]
  - Atrial fibrillation [Unknown]
